FAERS Safety Report 8829978 (Version 1)
Quarter: 2012Q4

REPORT INFORMATION
  Report Type: 
  Country: US (occurrence: US)
  Receive Date: 20121008
  Receipt Date: 20121008
  Transmission Date: 20130627
  Serious: Yes (Other)
  Sender: FDA-Public Use
  Company Number: US-TEVA-363068USA

PATIENT
  Sex: Female
  Weight: 61.29 kg

DRUGS (6)
  1. AMPHETAMINE ASPARTATE AND AMPHETAMINE SULFATE AND DEXTROAMPHETAMINE SACCHARATE AND DEXTROAMPHETAMINE [Suspect]
     Indication: ATTENTION DEFICIT/HYPERACTIVITY DISORDER
     Dosage: daily
     Route: 048
  2. EFFEXOR-XR [Suspect]
     Indication: DEPRESSION
     Route: 048
     Dates: end: 2006
  3. EFFEXOR [Suspect]
     Indication: DEPRESSION
     Dosage: 300 Milligram Daily;
     Route: 048
     Dates: start: 2006
  4. XANAX [Suspect]
     Indication: ANXIETY
     Dosage: 4x/day
     Route: 048
  5. GEODON [Suspect]
     Indication: BIPOLAR DISORDER
     Dosage: 80 Milligram Daily;
  6. SEROQUEL [Suspect]
     Indication: BIPOLAR DISORDER
     Dosage: 300 Milligram Daily;

REACTIONS (10)
  - Mood swings [Unknown]
  - Suicidal ideation [Unknown]
  - Oedema [Recovered/Resolved]
  - Hallucination [Unknown]
  - Crying [Unknown]
  - Abnormal behaviour [Unknown]
  - Feeling abnormal [Unknown]
  - Depressed mood [Unknown]
  - Wrong technique in drug usage process [Unknown]
  - Drug administration error [Unknown]
